FAERS Safety Report 7415237-7 (Version None)
Quarter: 2011Q2

REPORT INFORMATION
  Report Type: 
  Country: None (occurrence: None)
  Receive Date: 20110414
  Receipt Date: 20110411
  Transmission Date: 20111010
  Serious: Yes (Death, Hospitalization)
  Sender: FDA-Public Use
  Company Number: PHHY2011CO30403

PATIENT
  Sex: Male

DRUGS (2)
  1. DIOVAN HCT [Suspect]
     Indication: HYPERTENSION
     Dosage: 1 DF, 80/12.5 MG PER DAY
     Route: 048
     Dates: start: 20091026, end: 20110319
  2. METFORMIN [Concomitant]
     Dosage: 750 MG PER DAY

REACTIONS (2)
  - LUNG INFECTION [None]
  - CARDIO-RESPIRATORY ARREST [None]
